FAERS Safety Report 12381054 (Version 3)
Quarter: 2016Q3

REPORT INFORMATION
  Report Type: Spontaneous
  Country: US (occurrence: US)
  Receive Date: 20160518
  Receipt Date: 20160720
  Transmission Date: 20161109
  Serious: Yes (Hospitalization, Other)
  Sender: FDA-Public Use
  Company Number: US-GLAXOSMITHKLINE-A0863064A

PATIENT
  Age: 69 Year
  Sex: Female
  Weight: 83.9 kg

DRUGS (14)
  1. XANAX [Concomitant]
     Active Substance: ALPRAZOLAM
  2. PRADAXA [Concomitant]
     Active Substance: DABIGATRAN ETEXILATE MESYLATE
  3. ESCITALOPRAM [Concomitant]
     Active Substance: ESCITALOPRAM OXALATE
  4. PRAVASTATIN. [Concomitant]
     Active Substance: PRAVASTATIN
  5. WARFARIN [Concomitant]
     Active Substance: WARFARIN
  6. TELMISARTAN. [Concomitant]
     Active Substance: TELMISARTAN
  7. CARVEDILOL. [Concomitant]
     Active Substance: CARVEDILOL
  8. LEXAPRO [Concomitant]
     Active Substance: ESCITALOPRAM OXALATE
  9. RYTHMOL SR [Suspect]
     Active Substance: PROPAFENONE HYDROCHLORIDE
     Indication: ARRHYTHMIA
     Dosage: 225 MG, BID
     Route: 048
     Dates: start: 200904
  10. CARDIZEM [Concomitant]
     Active Substance: DILTIAZEM HYDROCHLORIDE
  11. COUMADIN [Concomitant]
     Active Substance: WARFARIN SODIUM
  12. RYTHMOL SR [Suspect]
     Active Substance: PROPAFENONE HYDROCHLORIDE
     Dosage: 325 MG, BID
     Route: 065
     Dates: start: 20110425
  13. PROPAFENONE. [Suspect]
     Active Substance: PROPAFENONE
     Indication: ATRIAL FIBRILLATION
     Dosage: 325 MG, TID
     Route: 048
     Dates: start: 20100527, end: 20100527
  14. PRILOSEC [Concomitant]
     Active Substance: OMEPRAZOLE MAGNESIUM

REACTIONS (10)
  - Atrial fibrillation [Unknown]
  - Cardiac flutter [Unknown]
  - Therapeutic response changed [Unknown]
  - Drug ineffective [Unknown]
  - Drug dose omission [Unknown]
  - Hospitalisation [Unknown]
  - Hypertension [Unknown]
  - Emergency care [Unknown]
  - Feeling abnormal [Unknown]
  - Product substitution issue [Unknown]

NARRATIVE: CASE EVENT DATE: 20100526
